FAERS Safety Report 24616927 (Version 2)
Quarter: 2024Q4

REPORT INFORMATION
  Report Type: Spontaneous
  Country: FR (occurrence: FR)
  Receive Date: 20241114
  Receipt Date: 20241216
  Transmission Date: 20250115
  Serious: Yes (Other)
  Sender: NOVARTIS
  Company Number: FR-002147023-NVSC2024FR217807

PATIENT
  Age: 72 Year
  Sex: Male
  Weight: 72 kg

DRUGS (12)
  1. ENTRESTO [Suspect]
     Active Substance: SACUBITRIL\VALSARTAN
     Indication: Cardiac failure
     Dosage: UNK UNK, BID
     Route: 048
     Dates: start: 20200214, end: 20240430
  2. ENTRESTO [Suspect]
     Active Substance: SACUBITRIL\VALSARTAN
     Indication: Ischaemic cardiomyopathy
  3. BISOPROLOL [Concomitant]
     Active Substance: BISOPROLOL
     Indication: Ischaemic cardiomyopathy
     Dosage: UNK (BEFORE 2017)
     Route: 048
  4. DAPAGLIFLOZIN [Concomitant]
     Active Substance: DAPAGLIFLOZIN
     Indication: Ischaemic cardiomyopathy
     Dosage: UNK
     Route: 048
     Dates: start: 20240408
  5. LEVOTHYROXINE [Concomitant]
     Active Substance: LEVOTHYROXINE
     Indication: Hypothyroidism
     Dosage: UNK (BEFORE 2017)
     Route: 048
  6. EPLERENONE [Concomitant]
     Active Substance: EPLERENONE
     Indication: Ischaemic cardiomyopathy
     Dosage: UNK
     Route: 048
     Dates: start: 20210305
  7. EZETIMIBE [Concomitant]
     Active Substance: EZETIMIBE
     Indication: Dyslipidaemia
     Dosage: UNK (10/20) (BEFORE 2017)
     Route: 048
  8. ASPIRIN [Concomitant]
     Active Substance: ASPIRIN
     Indication: Product used for unknown indication
     Dosage: UNK
     Route: 065
  9. PANTOPRAZOLE [Concomitant]
     Active Substance: PANTOPRAZOLE
     Indication: Product used for unknown indication
     Dosage: UNK
     Route: 065
  10. BROMAZEPAM [Concomitant]
     Active Substance: BROMAZEPAM
     Indication: Product used for unknown indication
     Dosage: UNK
     Route: 065
  11. CETIRIZINE [Concomitant]
     Active Substance: CETIRIZINE HYDROCHLORIDE
     Indication: Pruritus
     Dosage: UNK
     Route: 065
     Dates: start: 20240412
  12. KETOCONAZOLE [Concomitant]
     Active Substance: KETOCONAZOLE
     Indication: Product used for unknown indication
     Dosage: 2X/WEEK FOR ONE MONTH
     Route: 065

REACTIONS (2)
  - Toxic skin eruption [Unknown]
  - Prurigo [Unknown]

NARRATIVE: CASE EVENT DATE: 20240101
